FAERS Safety Report 8565009-5 (Version None)
Quarter: 2012Q3

REPORT INFORMATION
  Report Type: 
  Country: None (occurrence: None)
  Receive Date: 20120803
  Receipt Date: 20120730
  Transmission Date: 20120928
  Serious: No
  Sender: FDA-Public Use
  Company Number: US-PFIZER INC-2012184109

PATIENT

DRUGS (2)
  1. PROTONIX [Suspect]
     Dosage: UNK
  2. PROCARDIA [Suspect]
     Dosage: UNK

REACTIONS (2)
  - ULCER [None]
  - BURNING SENSATION [None]
